FAERS Safety Report 6914988-8 (Version None)
Quarter: 2010Q3

REPORT INFORMATION
  Report Type: 
  Country: None (occurrence: None)
  Receive Date: 20100809
  Receipt Date: 20100730
  Transmission Date: 20110219
  Serious: Yes (Other)
  Sender: FDA-Public Use
  Company Number: CHPA2010US12356

PATIENT
  Age: 43 Year
  Sex: Female

DRUGS (2)
  1. EXCEDRIN (MIGRAINE) [Suspect]
     Indication: MIGRAINE
     Dosage: 2 GELTABS ONCE A DAY AS NEEDED
     Route: 048
     Dates: start: 20050101
  2. IMITREX ^CERENEX^ [Concomitant]

REACTIONS (5)
  - ANAEMIA [None]
  - COELIAC DISEASE [None]
  - CONCOMITANT DISEASE AGGRAVATED [None]
  - DRUG INEFFECTIVE [None]
  - PACKED RED BLOOD CELL TRANSFUSION [None]
